FAERS Safety Report 7603171-9 (Version None)
Quarter: 2011Q3

REPORT INFORMATION
  Report Type: 
  Country: None (occurrence: None)
  Receive Date: 20110712
  Receipt Date: 20110701
  Transmission Date: 20111222
  Serious: Yes (Other)
  Sender: FDA-Public Use
  Company Number: US-AMGEN-USASP2011024784

PATIENT
  Age: 59 Year
  Sex: Female

DRUGS (1)
  1. ENBREL [Suspect]
     Indication: RHEUMATOID ARTHRITIS
     Dosage: 50 MG, QWK
     Dates: start: 20101205

REACTIONS (8)
  - INSOMNIA [None]
  - MENTAL IMPAIRMENT [None]
  - MENTAL DISORDER [None]
  - EMOTIONAL DISTRESS [None]
  - DRUG INEFFECTIVE [None]
  - DEPRESSION [None]
  - TEARFULNESS [None]
  - FIBROMYALGIA [None]
